FAERS Safety Report 5454578-X (Version None)
Quarter: 2007Q3

REPORT INFORMATION
  Report Type: 
  Country: None (occurrence: None)
  Receive Date: 20070917
  Receipt Date: 20060927
  Transmission Date: 20080115
  Serious: No
  Sender: FDA-Public Use
  Company Number: US-ASTRAZENECA-2006UW18782

PATIENT
  Age: 13 Year
  Sex: Male
  Weight: 73.9 kg

DRUGS (3)
  1. SEROQUEL [Suspect]
     Indication: BIPOLAR DISORDER
     Route: 048
  2. SEROQUEL [Suspect]
     Indication: MANIA
     Route: 048
  3. LITHIUM [Concomitant]
     Route: 048

REACTIONS (2)
  - MANIA [None]
  - VIRAL INFECTION [None]
